FAERS Safety Report 7220426-0 (Version None)
Quarter: 2011Q1

REPORT INFORMATION
  Report Type: 
  Country: None (occurrence: None)
  Receive Date: 20110111
  Receipt Date: 20110106
  Transmission Date: 20110831
  Serious: Yes (Hospitalization)
  Sender: FDA-Public Use
  Company Number: CA-ABBOTT-11P-028-0695858-00

PATIENT
  Sex: Female
  Weight: 63.56 kg

DRUGS (13)
  1. NEXIUM [Concomitant]
     Indication: GASTRIC DISORDER
     Route: 048
     Dates: start: 19950101
  2. LIPITOR [Concomitant]
     Indication: BLOOD CHOLESTEROL INCREASED
     Route: 048
  3. AVAPRO [Concomitant]
     Indication: CARDIAC DISORDER
     Route: 048
     Dates: start: 20090101
  4. INSULIN [Concomitant]
     Indication: DIABETES MELLITUS
     Route: 058
     Dates: start: 20060101
  5. METHOTREXATE [Concomitant]
     Indication: ARTHRITIS
     Route: 048
     Dates: start: 20040101
  6. AZAPHEN [Concomitant]
     Indication: CARDIAC DISORDER
     Route: 048
     Dates: start: 19850101
  7. HUMALOG [Concomitant]
     Indication: DIABETES MELLITUS
     Route: 058
     Dates: start: 20060101
  8. RIVA-RANITIDINE [Concomitant]
     Indication: PRODUCT USED FOR UNKNOWN INDICATION
     Route: 048
     Dates: start: 20000101
  9. METFORMIN [Concomitant]
     Indication: DIABETES MELLITUS
     Route: 048
     Dates: start: 19900101
  10. PRAMIPEXOLE [Concomitant]
     Indication: RESTLESS LEGS SYNDROME
     Route: 048
     Dates: start: 19900101
  11. ATENOLOL [Concomitant]
     Indication: HYPERTENSION
     Route: 048
     Dates: start: 19900101
  12. HUMIRA [Suspect]
     Indication: RHEUMATOID ARTHRITIS
     Route: 058
     Dates: start: 20070529
  13. ALENDRONATE [Concomitant]
     Indication: BONE DISORDER
     Route: 048
     Dates: start: 19900101

REACTIONS (18)
  - MALAISE [None]
  - PARAESTHESIA [None]
  - BLOODY DISCHARGE [None]
  - EYE INJURY [None]
  - NAUSEA [None]
  - SWELLING [None]
  - CLITORAL ENGORGEMENT [None]
  - GENITAL DISCHARGE [None]
  - GENITAL PAIN [None]
  - FALL [None]
  - GENITAL BURNING SENSATION [None]
  - VOMITING [None]
  - CONTUSION [None]
  - JOINT INJURY [None]
  - DIARRHOEA [None]
  - DIZZINESS [None]
  - ENLARGED CLITORIS [None]
  - GENITAL HAEMORRHAGE [None]
